FAERS Safety Report 6199347-0 (Version None)
Quarter: 2009Q2

REPORT INFORMATION
  Report Type: 
  Country: None (occurrence: None)
  Receive Date: 20090522
  Receipt Date: 20090519
  Transmission Date: 20091009
  Serious: Yes (Death)
  Sender: FDA-Public Use
  Company Number: JP-BAYER-200911604BYL

PATIENT
  Age: 54 Year
  Sex: Male

DRUGS (2)
  1. FLUDARA [Suspect]
     Indication: MYELODYSPLASTIC SYNDROME
     Dosage: AS USED: 30 MG/M2  UNIT DOSE: 50 MG
     Route: 042
     Dates: start: 20090413, end: 20090417
  2. BUSULFAN [Concomitant]
     Indication: MYELODYSPLASTIC SYNDROME
     Dosage: AS USED: 1 MG/KG
     Route: 065

REACTIONS (3)
  - BACTERIAL INFECTION [None]
  - FUNGAL INFECTION [None]
  - IMMUNE SYSTEM DISORDER [None]
